FAERS Safety Report 7012438-7 (Version None)
Quarter: 2010Q3

REPORT INFORMATION
  Report Type: 
  Country: None (occurrence: None)
  Receive Date: 20100924
  Receipt Date: 20100816
  Transmission Date: 20110219
  Serious: No
  Sender: FDA-Public Use
  Company Number: US-JNJFOC-20100805271

PATIENT
  Sex: Male
  Weight: 72.58 kg

DRUGS (2)
  1. INVEGA [Suspect]
     Indication: DELUSION
     Route: 048
  2. WELLBUTRIN [Concomitant]
     Indication: PRODUCT USED FOR UNKNOWN INDICATION

REACTIONS (1)
  - SOMNOLENCE [None]
